FAERS Safety Report 12474502 (Version 4)
Quarter: 2017Q2

REPORT INFORMATION
  Report Type: Report from Study
  Country: US (occurrence: US)
  Receive Date: 20160617
  Receipt Date: 20170621
  Transmission Date: 20170830
  Serious: No
  Sender: FDA-Public Use
  Company Number: PHHY2014US134274

PATIENT
  Age: 40 Year
  Sex: Male

DRUGS (1)
  1. GILENYA [Suspect]
     Active Substance: FINGOLIMOD HYDROCHLORIDE
     Indication: MULTIPLE SCLEROSIS
     Dosage: UNK, QD
     Route: 048

REACTIONS (11)
  - Hallucination [Unknown]
  - Irritability [Unknown]
  - White blood cell count decreased [Unknown]
  - Disturbance in attention [Unknown]
  - Anxiety [Unknown]
  - Fatigue [Unknown]
  - Premature ejaculation [Unknown]
  - Diarrhoea [Unknown]
  - High density lipoprotein increased [Unknown]
  - Alanine aminotransferase increased [Unknown]
  - Depression [Not Recovered/Not Resolved]

NARRATIVE: CASE EVENT DATE: 20140314
